FAERS Safety Report 15428103 (Version 2)
Quarter: 2018Q3

REPORT INFORMATION
  Report Type: Spontaneous
  Country: US (occurrence: US)
  Receive Date: 20180926
  Receipt Date: 20180928
  Transmission Date: 20181010
  Serious: Yes (Other)
  Sender: FDA-Public Use
  Company Number: US-BIOGEN-2018BI00635100

PATIENT
  Sex: Female

DRUGS (1)
  1. TYSABRI [Suspect]
     Active Substance: NATALIZUMAB
     Indication: MULTIPLE SCLEROSIS
     Route: 065

REACTIONS (4)
  - Prescribed underdose [Unknown]
  - Retinal haemorrhage [Not Recovered/Not Resolved]
  - Fatigue [Not Recovered/Not Resolved]
  - Blindness unilateral [Not Recovered/Not Resolved]
